FAERS Safety Report 15331953 (Version 2)
Quarter: 2018Q3

REPORT INFORMATION
  Report Type: Spontaneous
  Country: CN (occurrence: CN)
  Receive Date: 20180829
  Receipt Date: 20180829
  Transmission Date: 20181010
  Serious: Yes (Other)
  Sender: FDA-Public Use
  Company Number: PHHY2018CN079132

PATIENT
  Age: 44 Year
  Sex: Female
  Weight: 68 kg

DRUGS (2)
  1. CICLOSPORIN [Suspect]
     Active Substance: CYCLOSPORINE
     Dosage: 100 TO 150MG (TWICE A DAY)
     Route: 048
  2. CICLOSPORIN [Suspect]
     Active Substance: CYCLOSPORINE
     Indication: APLASTIC ANAEMIA
     Dosage: 150 MG, BID
     Route: 048

REACTIONS (5)
  - Muscular weakness [Unknown]
  - Thrombosis [Recovered/Resolved]
  - Haemorrhage [Unknown]
  - Ischaemia [Unknown]
  - Headache [Unknown]
